FAERS Safety Report 7033992-5 (Version None)
Quarter: 2010Q4

REPORT INFORMATION
  Report Type: 
  Country: None (occurrence: None)
  Receive Date: 20101006
  Receipt Date: 20100924
  Transmission Date: 20110411
  Serious: Yes (Hospitalization, Other)
  Sender: FDA-Public Use
  Company Number: GB-ACCORD-003918

PATIENT
  Age: 48 Year
  Sex: Male

DRUGS (2)
  1. SIMVASTATIN [Suspect]
     Indication: PRODUCT USED FOR UNKNOWN INDICATION
     Dosage: 20.00 MG-1.0 DAYS
  2. TADALAFIL [Suspect]
     Indication: PRODUCT USED FOR UNKNOWN INDICATION

REACTIONS (9)
  - ALANINE AMINOTRANSFERASE INCREASED [None]
  - ARTHROPATHY [None]
  - ASPARTATE AMINOTRANSFERASE INCREASED [None]
  - DRUG INTERACTION [None]
  - GAMMA-GLUTAMYLTRANSFERASE INCREASED [None]
  - MUSCLE INJURY [None]
  - MYALGIA [None]
  - MYOPATHY [None]
  - SPONTANEOUS PENILE ERECTION [None]
